FAERS Safety Report 4699146-2 (Version None)
Quarter: 2005Q2

REPORT INFORMATION
  Report Type: 
  Country: None (occurrence: None)
  Receive Date: 20050623
  Receipt Date: 20050623
  Transmission Date: 20051028
  Serious: No
  Sender: FDA-Public Use
  Company Number: None

PATIENT
  Sex: Male
  Weight: 75 kg

DRUGS (9)
  1. CITALOPRAM   40MG [Suspect]
     Indication: DEPRESSION
     Dosage: 20MG   QD   ORAL
     Route: 048
     Dates: start: 20050609, end: 20050615
  2. BUSPAR [Concomitant]
  3. VICODIN [Concomitant]
  4. TRAZODONE [Concomitant]
  5. PIROXICAM [Concomitant]
  6. PREDNISONE [Concomitant]
  7. ORAMORPH SR [Concomitant]
  8. PRILOSEC [Concomitant]
  9. ALBUTEROL [Concomitant]

REACTIONS (1)
  - OEDEMA PERIPHERAL [None]
